FAERS Safety Report 11892116 (Version 21)
Quarter: 2016Q4

REPORT INFORMATION
  Report Type: Report from Study
  Country: CA (occurrence: CA)
  Receive Date: 20160106
  Receipt Date: 20161223
  Transmission Date: 20170206
  Serious: Yes (Hospitalization)
  Sender: FDA-Public Use
  Company Number: CA-SA-2015SA077242

PATIENT
  Age: 37 Year
  Sex: Female
  Weight: 64 kg

DRUGS (23)
  1. ACETAMINOPHEN. [Concomitant]
     Active Substance: ACETAMINOPHEN
     Indication: PREMEDICATION
     Route: 048
     Dates: start: 20150525
  2. BACLOFEN. [Concomitant]
     Active Substance: BACLOFEN
  3. DIPHENHYDRAMINE. [Concomitant]
     Active Substance: DIPHENHYDRAMINE
     Indication: PREMEDICATION
     Dosage: ID, Q4-6H PRN
     Route: 048
     Dates: start: 20150525
  4. ACETAMINOPHEN. [Concomitant]
     Active Substance: ACETAMINOPHEN
     Indication: PREMEDICATION
     Dosage: ID Q4-6H PRN
     Route: 048
     Dates: start: 20150525
  5. ACETAMINOPHEN. [Concomitant]
     Active Substance: ACETAMINOPHEN
     Indication: PAIN
     Dosage: ID Q4-6H PRN
     Route: 048
     Dates: start: 20150525
  6. SYNTHROID [Concomitant]
     Active Substance: LEVOTHYROXINE SODIUM
     Indication: HYPOTHYROIDISM
     Route: 048
     Dates: start: 201503, end: 2016
  7. CYCLOBENZAPRINE [Concomitant]
     Active Substance: CYCLOBENZAPRINE
  8. ELAVIL [Concomitant]
     Active Substance: AMITRIPTYLINE HYDROCHLORIDE
  9. RANITIDINE. [Concomitant]
     Active Substance: RANITIDINE
     Indication: GASTRIC DISORDER
     Route: 048
     Dates: start: 20150525
  10. ACETAMINOPHEN. [Concomitant]
     Active Substance: ACETAMINOPHEN
     Indication: PAIN
     Route: 048
     Dates: start: 20150525
  11. FAMPYRA [Concomitant]
     Active Substance: DALFAMPRIDINE
  12. CELEXA [Concomitant]
     Active Substance: CITALOPRAM HYDROBROMIDE
  13. DIPHENHYDRAMINE. [Concomitant]
     Active Substance: DIPHENHYDRAMINE
     Indication: HYPERSENSITIVITY
     Dosage: ID, Q4-6H PRN
     Route: 048
     Dates: start: 20150525
  14. LAMICTAL [Concomitant]
     Active Substance: LAMOTRIGINE
  15. ACYCLOVIR. [Concomitant]
     Active Substance: ACYCLOVIR
     Indication: PREMEDICATION
     Route: 048
     Dates: start: 20150525
  16. DIMENHYDRINATE. [Concomitant]
     Active Substance: DIMENHYDRINATE
     Indication: NAUSEA
     Dosage: ID Q4H PRN
     Route: 048
     Dates: start: 20150525
  17. ACETAMINOPHEN. [Concomitant]
     Active Substance: ACETAMINOPHEN
     Indication: PYREXIA
     Dosage: ID Q4-6H PRN
     Route: 048
     Dates: start: 20150525
  18. METHYLPREDNISOLONE. [Concomitant]
     Active Substance: METHYLPREDNISOLONE
     Indication: PREMEDICATION
     Route: 042
     Dates: start: 20150525
  19. RANITIDINE. [Concomitant]
     Active Substance: RANITIDINE
     Indication: PREMEDICATION
     Route: 048
     Dates: start: 20150525
  20. DIMENHYDRINATE. [Concomitant]
     Active Substance: DIMENHYDRINATE
     Indication: PREMEDICATION
     Dosage: ID Q4H PRN
     Route: 048
     Dates: start: 20150525
  21. ACETAMINOPHEN. [Concomitant]
     Active Substance: ACETAMINOPHEN
     Indication: PYREXIA
     Route: 048
     Dates: start: 20150525
  22. LEMTRADA [Suspect]
     Active Substance: ALEMTUZUMAB
     Indication: RELAPSING-REMITTING MULTIPLE SCLEROSIS
     Route: 041
     Dates: start: 20150525, end: 20150527
  23. LYRICA [Concomitant]
     Active Substance: PREGABALIN

REACTIONS (39)
  - Glucose urine present [Recovered/Resolved]
  - Bacterial test [Not Recovered/Not Resolved]
  - Haematocrit decreased [Recovered/Resolved]
  - Urine ketone body present [Recovered/Resolved]
  - Fatigue [Unknown]
  - pH urine increased [Recovered/Resolved]
  - Platelet anisocytosis [Unknown]
  - Urinary sediment present [Unknown]
  - Neutrophil count increased [Recovered/Resolved]
  - Granulocytes abnormal [Recovered/Resolved]
  - Monocyte percentage increased [Not Recovered/Not Resolved]
  - Headache [Recovered/Resolved]
  - White blood cell count decreased [Recovered/Resolved]
  - White blood cells urine positive [Recovered/Resolved]
  - Nausea [Unknown]
  - Haemoglobin decreased [Recovered/Resolved]
  - Angina bullosa haemorrhagica [Recovered/Resolved]
  - Granulocyte count increased [Recovered/Resolved]
  - Urine abnormality [Recovered/Resolved]
  - Punctate basophilia [Unknown]
  - Polychromasia [Unknown]
  - Red blood cell count decreased [Recovered/Resolved]
  - Monocyte count decreased [Recovered/Resolved]
  - Expired product administered [Unknown]
  - Hospitalisation [Recovering/Resolving]
  - Monocyte count increased [Recovered/Resolved]
  - Hypoaesthesia [Recovered/Resolved]
  - Skin discolouration [Recovering/Resolving]
  - Immune thrombocytopenic purpura [Not Recovered/Not Resolved]
  - Lymphocyte percentage decreased [Not Recovered/Not Resolved]
  - Blood thyroid stimulating hormone increased [Recovered/Resolved]
  - Platelet count decreased [Recovering/Resolving]
  - Myelocyte percentage increased [Unknown]
  - Myelocyte count increased [Unknown]
  - Neutrophil percentage increased [Recovered/Resolved]
  - Monocyte percentage decreased [Recovered/Resolved]
  - Muscular weakness [Recovering/Resolving]
  - Lymphocyte count decreased [Not Recovered/Not Resolved]
  - Blood thyroid stimulating hormone decreased [Recovered/Resolved]

NARRATIVE: CASE EVENT DATE: 201505
